FAERS Safety Report 16698877 (Version 4)
Quarter: 2019Q4

REPORT INFORMATION
  Report Type: Spontaneous
  Country: FR (occurrence: FR)
  Receive Date: 20190813
  Receipt Date: 20191220
  Transmission Date: 20200122
  Serious: Yes (Hospitalization, Other)
  Sender: FDA-Public Use
  Company Number: FR-MYLANLABS-2019M1075361

PATIENT
  Age: 73 Year
  Sex: Female
  Weight: 64 kg

DRUGS (5)
  1. FUROSEMIDE. [Suspect]
     Active Substance: FUROSEMIDE
     Indication: CHRONIC KIDNEY DISEASE
     Dosage: 100 MILLIGRAM, QD
     Route: 048
     Dates: start: 201207, end: 20190121
  2. DICLOFENAC [Suspect]
     Active Substance: DICLOFENAC
     Indication: PAIN
     Dosage: 1 DOSAGE FORM, QD
     Route: 003
     Dates: start: 201811, end: 20190121
  3. VIREAD [Suspect]
     Active Substance: TENOFOVIR DISOPROXIL FUMARATE
     Indication: CHRONIC HEPATITIS B
     Dosage: 735 MILLIGRAM, QD (245 MG, TID)
     Route: 048
     Dates: start: 2012
  4. DICLOFENAC [Suspect]
     Active Substance: DICLOFENAC
     Dosage: 1 DOSAGE FORM, QD
     Route: 003
     Dates: start: 201812, end: 20190122
  5. ATACAND [Suspect]
     Active Substance: CANDESARTAN CILEXETIL
     Indication: CHRONIC KIDNEY DISEASE
     Dosage: 1 DOSAGE FORM, QD
     Route: 048
     Dates: start: 201207, end: 20190121

REACTIONS (1)
  - Acute kidney injury [Recovering/Resolving]

NARRATIVE: CASE EVENT DATE: 20190122
